FAERS Safety Report 18551826 (Version 3)
Quarter: 2021Q1

REPORT INFORMATION
  Report Type: Spontaneous
  Country: DE (occurrence: DE)
  Receive Date: 20201126
  Receipt Date: 20210226
  Transmission Date: 20210419
  Serious: Yes (Death, Hospitalization, Other)
  Sender: FDA-Public Use
  Company Number: DE-JNJFOC-20201148317

PATIENT
  Age: 86 Year
  Sex: Female

DRUGS (19)
  1. ESOMEPRAZOLE. [Concomitant]
     Active Substance: ESOMEPRAZOLE MAGNESIUM
     Dosage: 40 MG, QD, 0?0?1
  2. DL? LACTIC ACID [Concomitant]
     Dosage: 2 ML, TID
  3. OXYGEN. [Concomitant]
     Active Substance: OXYGEN
     Dosage: 2L
  4. LACTULOSE. [Concomitant]
     Active Substance: LACTULOSE
     Dosage: 1?1?1
  5. ALDOSTERONE [Concomitant]
     Active Substance: ALDOSTERONE
     Dosage: 25 MG, QD, 1?0?0
  6. SCHWEDENTABLETTEN [Concomitant]
     Dosage: 2?2?2 (REGARDING SODIUM LEVEL)
  7. BACLOFEN. [Concomitant]
     Active Substance: BACLOFEN
     Dosage: 20 MG, TID
  8. METAMIZOLE [METAMIZOLE SODIUM] [Concomitant]
     Dosage: 20 GTT, TID
  9. RIVAROXABAN [Suspect]
     Active Substance: RIVAROXABAN
     Indication: PRODUCT USED FOR UNKNOWN INDICATION
     Dosage: 15 MG, QD, 1?0?1
     Route: 048
  10. APIXABAN [Concomitant]
     Active Substance: APIXABAN
     Dosage: UNK
     Dates: start: 20190109
  11. BACLOFEN. [Concomitant]
     Active Substance: BACLOFEN
     Dosage: 10 MG, BID,1?0?1
  12. METOPROLOL. [Concomitant]
     Active Substance: METOPROLOL
     Dosage: 95 MG, BID, 1?0?1
  13. DULOXETINE [DULOXETINE HYDROCHLORIDE] [Concomitant]
     Active Substance: DULOXETINE HYDROCHLORIDE
     Dosage: UNK
     Dates: start: 20190227
  14. NACL [Concomitant]
     Active Substance: SODIUM CHLORIDE
     Dosage: 8 DF, TID
  15. ACC [ACETYLCYSTEINE] [Concomitant]
     Active Substance: ACETYLCYSTEINE
     Dosage: 600 MG, QD, 1?0?1MG
  16. BELOC ZOK MITE [Concomitant]
     Active Substance: METOPROLOL SUCCINATE
     Dosage: 1?0?1
  17. OXYGEN. [Concomitant]
     Active Substance: OXYGEN
     Dosage: UNK
     Dates: start: 201901
  18. ESOMEPRAZOLE. [Concomitant]
     Active Substance: ESOMEPRAZOLE MAGNESIUM
     Dosage: 40 MG, QD, 0?0?2
  19. SPIRONOLACTON [Concomitant]
     Active Substance: SPIRONOLACTONE
     Dosage: 25 MG, BID, 1/2 ? 0 ? 1/2

REACTIONS (6)
  - Blindness [Unknown]
  - Thrombosis [Unknown]
  - Drug ineffective [Unknown]
  - Hypokalaemia [Unknown]
  - Peripheral ischaemia [Unknown]
  - Pyrexia [Unknown]

NARRATIVE: CASE EVENT DATE: 2019
